FAERS Safety Report 7600268-4 (Version None)
Quarter: 2011Q3

REPORT INFORMATION
  Report Type: 
  Country: None (occurrence: None)
  Receive Date: 20110711
  Receipt Date: 20110701
  Transmission Date: 20111222
  Serious: Yes (Hospitalization)
  Sender: FDA-Public Use
  Company Number: US-NOVOPROD-327381

PATIENT
  Age: 55 Year
  Sex: Female
  Weight: 94.331 kg

DRUGS (4)
  1. VICTOZA [Suspect]
     Dosage: 1.2 MG, QD
  2. SYNTHROID [Concomitant]
     Indication: HYPOTHYROIDISM
     Dosage: UNKNOWN
  3. VICTOZA [Suspect]
     Indication: TYPE 2 DIABETES MELLITUS
     Dosage: .06 MG, QD
     Dates: start: 20110218
  4. VICTOZA [Suspect]
     Dosage: 1.8 MG, QD
     Dates: end: 20110422

REACTIONS (1)
  - CHOLECYSTITIS ACUTE [None]
